FAERS Safety Report 9302895 (Version 2)
Quarter: 2013Q3

REPORT INFORMATION
  Report Type: Spontaneous
  Country: US (occurrence: US)
  Receive Date: 20130522
  Receipt Date: 20130715
  Transmission Date: 20140515
  Serious: Yes (Death)
  Sender: FDA-Public Use
  Company Number: US-PURDUE-USA-2013-0102443

PATIENT
  Age: 89 Year
  Sex: Female
  Weight: 65.31 kg

DRUGS (4)
  1. BUTRANS [Suspect]
     Indication: OSTEOARTHRITIS
     Dosage: UNK
     Route: 062
     Dates: start: 20130329, end: 201305
  2. ARICEPT [Concomitant]
     Indication: DEMENTIA
     Dosage: 10 MG, DAILY
     Dates: start: 1999, end: 2013
  3. ZOLOFT [Concomitant]
     Indication: DEPRESSION
     Dosage: 5 MG, DAILY
     Dates: start: 2009, end: 2013
  4. NAMENDA [Concomitant]
     Indication: DEMENTIA
     Dosage: 5 MG, BID
     Dates: start: 1999, end: 2013

REACTIONS (1)
  - Dementia Alzheimer^s type [Fatal]
